FAERS Safety Report 4416725-8 (Version None)
Quarter: 2004Q3

REPORT INFORMATION
  Report Type: 
  Country: None (occurrence: None)
  Receive Date: 20040802
  Receipt Date: 20040720
  Transmission Date: 20050211
  Serious: Yes (Hospitalization)
  Sender: FDA-Public Use
  Company Number: K200401028

PATIENT
  Age: 62 Year
  Sex: Male

DRUGS (1)
  1. SYNERCID [Suspect]
     Indication: INFECTION
     Dosage: INTRAVENOUS
     Route: 042
     Dates: start: 20040629, end: 20040706

REACTIONS (4)
  - ASTHENIA [None]
  - CONFUSIONAL STATE [None]
  - JOINT STIFFNESS [None]
  - PAIN [None]
